FAERS Safety Report 17293157 (Version 5)
Quarter: 2024Q1

REPORT INFORMATION
  Report Type: Spontaneous
  Country: TR (occurrence: TR)
  Receive Date: 20200121
  Receipt Date: 20240118
  Transmission Date: 20240410
  Serious: Yes (Other)
  Sender: FDA-Public Use
  Company Number: None

PATIENT
  Age: 42 Year
  Sex: Male

DRUGS (5)
  1. TRILEPTAL [Suspect]
     Active Substance: OXCARBAZEPINE
     Indication: Epilepsy
     Dosage: 300 MG IN THE MORNING (DURING DAY)
     Route: 065
  2. TRILEPTAL [Suspect]
     Active Substance: OXCARBAZEPINE
     Dosage: 600 MG, QHS (DURING NIGHT)
     Route: 065
  3. TRILEPTAL [Suspect]
     Active Substance: OXCARBAZEPINE
     Dosage: 1 DOSAGE FORM, QD, 1 TABLET IN THE EVENING, QD (STRENGTH: 600MG)
     Route: 065
  4. TRILEPTAL [Suspect]
     Active Substance: OXCARBAZEPINE
     Dosage: 1 DOSAGE FORM, 1 TABLET IN THE MORNING, QD (STRENGTH: 300MG)
     Route: 065
  5. LEV-END [Concomitant]
     Indication: Epilepsy
     Dosage: 1200 MG (FREQUENCY:300MG) (300MG DURING DAY, AT NOON, IN THE EVENING AND AT NIGHT)
     Route: 065

REACTIONS (10)
  - Mouth haemorrhage [Not Recovered/Not Resolved]
  - Seizure [Unknown]
  - Epistaxis [Not Recovered/Not Resolved]
  - Bite [Recovering/Resolving]
  - Feeling abnormal [Unknown]
  - Foaming at mouth [Recovering/Resolving]
  - Illness [Unknown]
  - Depression [Unknown]
  - Headache [Unknown]
  - Drug ineffective [Recovering/Resolving]
